FAERS Safety Report 11527925 (Version 1)
Quarter: 2015Q3

REPORT INFORMATION
  Report Type: Spontaneous
  Country: CA (occurrence: CA)
  Receive Date: 20150920
  Receipt Date: 20150920
  Transmission Date: 20151125
  Serious: Yes (Other)
  Sender: FDA-Public Use
  Company Number: CA-UCBSA-2015029372

PATIENT
  Sex: Male
  Weight: 72 kg

DRUGS (1)
  1. KEPPRA [Suspect]
     Active Substance: LEVETIRACETAM
     Indication: EPILEPSY
     Dosage: 2 G, 2X/DAY (BID)

REACTIONS (2)
  - Complex partial seizures [Recovered/Resolved]
  - Product substitution issue [Unknown]
